FAERS Safety Report 16779234 (Version 1)
Quarter: 2019Q3

REPORT INFORMATION
  Report Type: Spontaneous
  Country: BE (occurrence: BE)
  Receive Date: 20190906
  Receipt Date: 20190906
  Transmission Date: 20191005
  Serious: Yes (Other)
  Sender: FDA-Public Use
  Company Number: BE-AUROBINDO-AUR-APL-2019-058478

PATIENT

DRUGS (1)
  1. DULOXETINE 30 MG [Suspect]
     Active Substance: DULOXETINE
     Indication: PRODUCT USED FOR UNKNOWN INDICATION
     Dosage: UNK
     Route: 065

REACTIONS (7)
  - Nausea [Unknown]
  - Balance disorder [Unknown]
  - Glaucoma [Unknown]
  - Condition aggravated [Unknown]
  - Abdominal pain [Unknown]
  - Dysuria [Unknown]
  - Peripheral swelling [Unknown]
